FAERS Safety Report 8443566-7 (Version None)
Quarter: 2012Q2

REPORT INFORMATION
  Report Type: 
  Country: None (occurrence: None)
  Receive Date: 20120618
  Receipt Date: 20120613
  Transmission Date: 20120825
  Serious: No
  Sender: FDA-Public Use
  Company Number: US-PFIZER INC-2012143742

PATIENT
  Age: 32 Year
  Sex: Female

DRUGS (6)
  1. ZOLOFT [Suspect]
     Indication: ANXIETY
     Dosage: UNK
  2. ZOLOFT [Suspect]
     Indication: DEPRESSION
  3. CLONAZEPAM [Concomitant]
     Dosage: 0.25 MG, 3X/DAY
  4. ACCUPRIL [Concomitant]
     Dosage: 10 MG, 2X/DAY
  5. PRAVASTATIN [Concomitant]
     Dosage: 20 MG, 1X/DAY
  6. NOVOLIN R [Concomitant]
     Dosage: UNK

REACTIONS (3)
  - RESTLESS LEGS SYNDROME [None]
  - ROSACEA [None]
  - MUSCLE SPASMS [None]
